FAERS Safety Report 21302993 (Version 1)
Quarter: 2022Q3

REPORT INFORMATION
  Report Type: Spontaneous
  Country: RU (occurrence: RU)
  Receive Date: 20220907
  Receipt Date: 20220907
  Transmission Date: 20221027
  Serious: Yes (Other)
  Sender: FDA-Public Use
  Company Number: RU-R-PHARM US LLC-2022RPM00011

PATIENT
  Age: 46 Year
  Sex: Female

DRUGS (7)
  1. IXEMPRA [Suspect]
     Active Substance: IXABEPILONE
     Indication: Breast cancer stage II
     Dosage: 1ST COURSE: IN COMBINATION THERAPY WITH CAPECITABINE
  2. IXEMPRA [Suspect]
     Active Substance: IXABEPILONE
     Dosage: 2ND COURSE: IN COMBINATION THERAPY WITH CAPECITABINE
  3. IXEMPRA [Suspect]
     Active Substance: IXABEPILONE
     Dosage: 3RD COUSE: IXEMPRA MONO REGIMEN
  4. IXEMPRA [Suspect]
     Active Substance: IXABEPILONE
     Dosage: 4TH COURSE: IXEMPRA MONO REGIMEN
  5. IXEMPRA [Suspect]
     Active Substance: IXABEPILONE
     Dosage: 5TH COURSE: IXEMPRA MONO REGIMEN
  6. IXEMPRA [Suspect]
     Active Substance: IXABEPILONE
     Dosage: 6TH COURSE: IXEMPRA MONO REGIMEN
  7. CAPECITABINE [Suspect]
     Active Substance: CAPECITABINE

REACTIONS (3)
  - Neoplasm progression [Unknown]
  - Haematotoxicity [Unknown]
  - Vaginal infection [Recovered/Resolved]

NARRATIVE: CASE EVENT DATE: 20210301
